FAERS Safety Report 5042781-2 (Version None)
Quarter: 2006Q2

REPORT INFORMATION
  Report Type: 
  Country: None (occurrence: None)
  Receive Date: 20060601
  Receipt Date: 20060224
  Transmission Date: 20061013
  Serious: No
  Sender: FDA-Public Use
  Company Number: 2006PV009235

PATIENT
  Sex: Male

DRUGS (8)
  1. BYETTA [Suspect]
     Indication: DRUG USE FOR UNKNOWN INDICATION
     Dosage: 5 MCG;SC
     Route: 058
     Dates: start: 20051201
  2. METFORMIN [Concomitant]
  3. ACTOS /USA/ [Concomitant]
  4. ASPIRIN [Concomitant]
  5. UNKNOWN DIABETES MEDICATION [Concomitant]
  6. ASPIRIN [Concomitant]
  7. THYROID TAB [Concomitant]
  8. CHOLESTEROL MEDICATION [Concomitant]

REACTIONS (3)
  - BLOOD GLUCOSE INCREASED [None]
  - INJECTION SITE BRUISING [None]
  - INJECTION SITE REACTION [None]
